FAERS Safety Report 20042522 (Version 1)
Quarter: 2021Q4

REPORT INFORMATION
  Report Type: Spontaneous
  Country: US (occurrence: US)
  Receive Date: 20211108
  Receipt Date: 20211108
  Transmission Date: 20220303
  Serious: No
  Sender: FDA-Public Use
  Company Number: US-MACLEODS PHARMACEUTICALS US LTD-MAC2021033248

PATIENT

DRUGS (1)
  1. RIZATRIPTAN [Suspect]
     Active Substance: RIZATRIPTAN
     Indication: Product used for unknown indication
     Dosage: UNK, NDC 33342009441, WITH 3 DIFFERENT TABLETS
     Route: 065

REACTIONS (2)
  - Dry mouth [Unknown]
  - Recalled product administered [Unknown]
